FAERS Safety Report 9089811 (Version 1)
Quarter: 2013Q1

REPORT INFORMATION
  Report Type: Spontaneous
  Country: US (occurrence: US)
  Receive Date: 20130201
  Receipt Date: 20130201
  Transmission Date: 20140127
  Serious: No
  Sender: FDA-Public Use
  Company Number: US-ABBOTT-12P-163-1021134-00

PATIENT
  Age: 36 Year
  Sex: Female
  Weight: 70.82 kg

DRUGS (6)
  1. HUMIRA [Suspect]
     Indication: CROHN^S DISEASE
     Dates: start: 20121115, end: 20121115
  2. HUMIRA [Suspect]
     Dates: start: 20121206, end: 20121206
  3. VENTYL [Concomitant]
     Indication: PRODUCT USED FOR UNKNOWN INDICATION
  4. ONE A DAY WOMEN^S [Concomitant]
     Indication: VITAMIN SUPPLEMENTATION
  5. PRISTIQ [Concomitant]
     Indication: ANXIETY
  6. XANAX [Concomitant]
     Indication: ANXIETY

REACTIONS (6)
  - Dizziness [Not Recovered/Not Resolved]
  - Malaise [Recovered/Resolved]
  - Diarrhoea [Not Recovered/Not Resolved]
  - Injection site pain [Recovered/Resolved]
  - Dizziness [Recovered/Resolved]
  - Malaise [Recovered/Resolved]
